FAERS Safety Report 5202702-6 (Version None)
Quarter: 2007Q1

REPORT INFORMATION
  Report Type: 
  Country: None (occurrence: None)
  Receive Date: 20070109
  Receipt Date: 20061220
  Transmission Date: 20070707
  Serious: Yes (Other)
  Sender: FDA-Public Use
  Company Number: US-PFIZER INC-2006156105

PATIENT
  Age: 89 Year
  Sex: Female

DRUGS (1)
  1. LATANOPROST [Suspect]
     Dosage: DAILY DOSE:1DROP-TEXT:1 DROP DAILY RIGHT EYE
     Route: 047

REACTIONS (1)
  - CHOROIDAL DETACHMENT [None]
